FAERS Safety Report 6956207-2 (Version None)
Quarter: 2010Q3

REPORT INFORMATION
  Report Type: 
  Country: None (occurrence: None)
  Receive Date: 20100826
  Receipt Date: 20100810
  Transmission Date: 20110219
  Serious: Yes (Other)
  Sender: FDA-Public Use
  Company Number: 2010-2805

PATIENT
  Age: 57 Year
  Sex: Female

DRUGS (5)
  1. SOMATULINE DEPOT [Suspect]
     Indication: ACROMEGALY
     Dosage: (120 MG,1 IN 28 D),INTRAMUSCULAR
     Route: 030
     Dates: start: 20071218
  2. CLOPIDOGREL [Concomitant]
  3. ASCAL (CARBASALATE CALCIUM) [Concomitant]
  4. METOPROLOL SUCCINATE [Concomitant]
  5. LIPITOR [Concomitant]

REACTIONS (1)
  - ANGINA PECTORIS [None]
